FAERS Safety Report 11299080 (Version 1)
Quarter: 2015Q3

REPORT INFORMATION
  Report Type: Spontaneous
  Country: US (occurrence: US)
  Receive Date: 20150722
  Receipt Date: 20150722
  Transmission Date: 20151125
  Serious: No
  Sender: FDA-Public Use
  Company Number: US-ELI_LILLY_AND_COMPANY-US201201009151

PATIENT
  Sex: Female
  Weight: 85.26 kg

DRUGS (13)
  1. ESTRADIOL. [Concomitant]
     Active Substance: ESTRADIOL
     Dosage: 0.5 MG, QD
  2. HUMATROPE [Suspect]
     Active Substance: SOMATROPIN
     Indication: BLOOD GROWTH HORMONE DECREASED
     Dosage: 0.4 MG, QD
     Route: 058
  3. ETODOLAC. [Concomitant]
     Active Substance: ETODOLAC
  4. LORAZEPAM. [Concomitant]
     Active Substance: LORAZEPAM
  5. PROVIGIL [Concomitant]
     Active Substance: MODAFINIL
  6. GLUCOSAMINE SULFATE [Concomitant]
     Active Substance: GLUCOSAMINE SULFATE
  7. VYTORIN [Concomitant]
     Active Substance: EZETIMIBE\SIMVASTATIN
  8. FLUOXETINE [Concomitant]
     Active Substance: FLUOXETINE\FLUOXETINE HYDROCHLORIDE
  9. DIVALPROEX [Concomitant]
     Active Substance: DIVALPROEX SODIUM
  10. BENZTROPINE [Concomitant]
     Active Substance: BENZTROPINE
  11. ESTRACE [Concomitant]
     Active Substance: ESTRADIOL
  12. CALCIUM [Concomitant]
     Active Substance: CALCIUM
  13. GEODON [Concomitant]
     Active Substance: ZIPRASIDONE HYDROCHLORIDE\ZIPRASIDONE MESYLATE

REACTIONS (1)
  - Injection site bruising [Recovered/Resolved]
